FAERS Safety Report 6833737-5 (Version None)
Quarter: 2010Q3

REPORT INFORMATION
  Report Type: 
  Country: None (occurrence: None)
  Receive Date: 20100712
  Receipt Date: 20070330
  Transmission Date: 20110219
  Serious: No
  Sender: FDA-Public Use
  Company Number: US-PFIZER INC-2007026990

PATIENT
  Age: 64 Year
  Sex: Female
  Weight: 53.52 kg

DRUGS (9)
  1. CHANTIX [Suspect]
     Indication: SMOKING CESSATION THERAPY
     Dates: start: 20070101
  2. SPIRIVA [Concomitant]
  3. ASTHMADEX [Concomitant]
  4. FORMOTEROL [Concomitant]
  5. MONTELUKAST SODIUM [Concomitant]
  6. ALBUTEROL [Concomitant]
     Route: 055
  7. DUONEB [Concomitant]
  8. FUROSEMIDE [Concomitant]
  9. VITAMINS [Concomitant]

REACTIONS (1)
  - CONSTIPATION [None]
